FAERS Safety Report 20322596 (Version 1)
Quarter: 2022Q1

REPORT INFORMATION
  Report Type: Spontaneous
  Country: GB (occurrence: GB)
  Receive Date: 20220111
  Receipt Date: 20220111
  Transmission Date: 20220424
  Serious: Yes (Other)
  Sender: FDA-Public Use
  Company Number: XI-CELGENE-NIL-20211004810

PATIENT
  Age: 53 Year
  Sex: Male
  Weight: 85.1 kg

DRUGS (19)
  1. LENALIDOMIDE [Suspect]
     Active Substance: LENALIDOMIDE
     Indication: Plasma cell myeloma
     Route: 048
     Dates: start: 201807, end: 201812
  2. LENALIDOMIDE [Suspect]
     Active Substance: LENALIDOMIDE
     Route: 048
     Dates: start: 201907
  3. LENALIDOMIDE [Suspect]
     Active Substance: LENALIDOMIDE
     Dosage: 3 MILLIGRAM
     Route: 048
     Dates: start: 202005, end: 202106
  4. THALIDOMIDE [Suspect]
     Active Substance: THALIDOMIDE
     Indication: Plasma cell myeloma
     Route: 065
     Dates: start: 201807, end: 201812
  5. DEXAMETHASONE [Suspect]
     Active Substance: DEXAMETHASONE
     Indication: Plasma cell myeloma
     Route: 041
     Dates: start: 201807, end: 201812
  6. DEXAMETHASONE [Suspect]
     Active Substance: DEXAMETHASONE
     Route: 048
     Dates: start: 202005, end: 202106
  7. DEXAMETHASONE [Suspect]
     Active Substance: DEXAMETHASONE
     Route: 065
     Dates: start: 202107, end: 202110
  8. DEXAMETHASONE [Suspect]
     Active Substance: DEXAMETHASONE
     Route: 041
  9. DEXAMETHASONE [Suspect]
     Active Substance: DEXAMETHASONE
     Route: 041
  10. DEXAMETHASONE [Suspect]
     Active Substance: DEXAMETHASONE
     Dosage: 8 MILLIGRAM
     Route: 041
  11. MELPHALAN [Suspect]
     Active Substance: MELPHALAN
     Indication: Plasma cell myeloma
     Route: 065
     Dates: start: 201907
  12. CARFILZOMIB [Suspect]
     Active Substance: CARFILZOMIB
     Indication: Plasma cell myeloma
     Route: 065
     Dates: start: 202107, end: 202110
  13. DARATUMUMAB [Suspect]
     Active Substance: DARATUMUMAB
     Indication: Plasma cell myeloma
     Route: 065
     Dates: start: 201807, end: 201812
  14. DARATUMUMAB [Suspect]
     Active Substance: DARATUMUMAB
     Route: 065
     Dates: start: 202005, end: 202106
  15. BORTEZOMIB [Suspect]
     Active Substance: BORTEZOMIB
     Indication: Plasma cell myeloma
     Route: 065
     Dates: start: 201807, end: 201812
  16. ELOTUZUMAB [Suspect]
     Active Substance: ELOTUZUMAB
     Indication: Plasma cell myeloma
     Route: 041
     Dates: start: 202005, end: 202006
  17. ELOTUZUMAB [Suspect]
     Active Substance: ELOTUZUMAB
     Indication: Disease progression
     Route: 041
  18. POMALIDOMIDE [Suspect]
     Active Substance: POMALIDOMIDE
     Indication: Plasma cell myeloma
     Dosage: 3 MILLIGRAM
     Route: 048
  19. POMALIDOMIDE [Suspect]
     Active Substance: POMALIDOMIDE
     Indication: Disease progression
     Dosage: 3 MILLIGRAM
     Route: 048

REACTIONS (3)
  - Neuralgia [Unknown]
  - Anaemia [Unknown]
  - Plasma cell myeloma [Unknown]

NARRATIVE: CASE EVENT DATE: 20210601
